FAERS Safety Report 8016463-9 (Version None)
Quarter: 2011Q4

REPORT INFORMATION
  Report Type: 
  Country: None (occurrence: None)
  Receive Date: 20111230
  Receipt Date: 20111226
  Transmission Date: 20120403
  Serious: Yes (Hospitalization, Other)
  Sender: FDA-Public Use
  Company Number: BR-ABBOTT-11P-020-0715053-00

PATIENT
  Sex: Female
  Weight: 61 kg

DRUGS (6)
  1. HUMIRA [Suspect]
     Indication: RHEUMATOID ARTHRITIS
     Route: 058
     Dates: start: 20080817, end: 20110301
  2. HUMIRA [Suspect]
     Route: 058
  3. ACETAMINOPHEN [Concomitant]
     Indication: PAIN
     Dosage: 50 DROPS A DAY
  4. DICLOFENAC POTASSIUM [Concomitant]
     Indication: PAIN
     Route: 048
  5. LOSARTAN POTASSIUM [Concomitant]
     Indication: HYPERTENSION
     Route: 048
     Dates: end: 20110101
  6. ARCOXIA [Concomitant]
     Indication: PAIN
     Route: 048

REACTIONS (10)
  - MUSCLE SPASMS [None]
  - RHINITIS ALLERGIC [None]
  - PAIN [None]
  - GASTRIC INFECTION [None]
  - ARTHRITIS [None]
  - HYPOTENSION [None]
  - NEPHROLITHIASIS [None]
  - RENAL CYST [None]
  - URINARY TRACT INFECTION [None]
  - MICTURITION URGENCY [None]
